FAERS Safety Report 12652599 (Version 2)
Quarter: 2016Q4

REPORT INFORMATION
  Report Type: Spontaneous
  Country: US (occurrence: US)
  Receive Date: 20160815
  Receipt Date: 20161109
  Transmission Date: 20170207
  Serious: No
  Sender: FDA-Public Use
  Company Number: US-PFIZER INC-2016387279

PATIENT
  Age: 66 Year
  Sex: Female

DRUGS (2)
  1. INDOMETHACIN. [Suspect]
     Active Substance: INDOMETHACIN
     Indication: ARTHRITIS
  2. INDOMETHACIN. [Suspect]
     Active Substance: INDOMETHACIN
     Indication: PAIN IN EXTREMITY
     Dosage: 50 MG, 4X/DAY (W/FOOD)
     Dates: start: 2003

REACTIONS (3)
  - Drug hypersensitivity [Recovered/Resolved]
  - Pain [Unknown]
  - Headache [Unknown]

NARRATIVE: CASE EVENT DATE: 2003
